FAERS Safety Report 12879955 (Version 2)
Quarter: 2016Q4

REPORT INFORMATION
  Report Type: Spontaneous
  Country: US (occurrence: US)
  Receive Date: 20161025
  Receipt Date: 20161205
  Transmission Date: 20170207
  Serious: No
  Sender: FDA-Public Use
  Company Number: US-PFIZER INC-2016493680

PATIENT
  Age: 77 Year
  Sex: Female

DRUGS (3)
  1. HYDROCHLOROTHIAZIDE. [Concomitant]
     Active Substance: HYDROCHLOROTHIAZIDE
     Indication: HYPERTENSION
     Dosage: 25 MG, 1X/DAY
  2. LEVOXYL [Concomitant]
     Active Substance: LEVOTHYROXINE SODIUM
     Indication: THYROID DISORDER
     Dosage: CYCLIC; TABLET, ONCE A DAY FOR SIX DAYS IN A WEEK;  0.112
  3. ZOLOFT [Suspect]
     Active Substance: SERTRALINE HYDROCHLORIDE
     Indication: DEPRESSION
     Dosage: 100 MG, 1X/DAY ORALLY
     Route: 048
     Dates: start: 2001

REACTIONS (5)
  - Dystonia [Not Recovered/Not Resolved]
  - Tremor [Recovering/Resolving]
  - Neck deformity [Unknown]
  - Neck pain [Unknown]
  - Musculoskeletal disorder [Unknown]
